FAERS Safety Report 8641942 (Version 3)
Quarter: 2013Q1

REPORT INFORMATION
  Report Type: Report from Study
  Country: US (occurrence: US)
  Receive Date: 20120628
  Receipt Date: 20130328
  Transmission Date: 20140127
  Serious: Yes (Death, Hospitalization)
  Sender: FDA-Public Use
  Company Number: US-ACTELION-A-US2012-67867

PATIENT
  Age: 73 Year
  Sex: Female
  Weight: 239.46 kg

DRUGS (23)
  1. VENTAVIS [Suspect]
     Indication: PULMONARY ARTERIAL HYPERTENSION
     Dosage: 5 ?G, 6X /DAY
     Route: 055
     Dates: start: 20100504, end: 20120607
  2. REVATIO [Suspect]
  3. COUMADIN [Suspect]
  4. ASPIRIN [Suspect]
  5. OXYGEN [Suspect]
  6. LETAIRIS [Suspect]
     Dosage: 5 MG, OD
     Dates: start: 20110705
  7. FENTANYL [Concomitant]
  8. DUONEB [Concomitant]
  9. FLONASE [Concomitant]
  10. DELTASONE [Concomitant]
  11. GLUCOTROL [Concomitant]
  12. PRILOSEC [Concomitant]
  13. TOPROL [Concomitant]
  14. VITAMIN D [Concomitant]
  15. ZOCOR [Concomitant]
  16. DIOVAN [Concomitant]
  17. SYNTHYROID [Concomitant]
  18. LOMOTIL [Concomitant]
  19. VALIUM [Concomitant]
  20. ADCIRCA [Concomitant]
  21. LANOXIN [Concomitant]
  22. AMIODARONE [Concomitant]
  23. LASIX [Concomitant]

REACTIONS (16)
  - Surgery [Fatal]
  - Asthenia [Fatal]
  - Post procedural complication [Fatal]
  - Atrial fibrillation [Recovered/Resolved]
  - Renal failure acute [Recovering/Resolving]
  - Haemoptysis [Unknown]
  - Respiratory distress [Recovered/Resolved]
  - Hypoxia [Recovered/Resolved]
  - Haemoglobin decreased [Recovering/Resolving]
  - Thrombocytopenia [Unknown]
  - Hypotension [Recovered/Resolved]
  - Back pain [Unknown]
  - Epistaxis [Unknown]
  - Dyspnoea [Recovered/Resolved]
  - Unresponsive to stimuli [Recovered/Resolved]
  - Blood creatinine increased [Recovering/Resolving]
